FAERS Safety Report 4677381-7 (Version None)
Quarter: 2005Q2

REPORT INFORMATION
  Report Type: 
  Country: None (occurrence: None)
  Receive Date: 20050531
  Receipt Date: 20050512
  Transmission Date: 20051028
  Serious: Yes (Death, Life-Threatening)
  Sender: FDA-Public Use
  Company Number: 200511607FR

PATIENT
  Age: 69 Year
  Sex: Male

DRUGS (5)
  1. AMARYL [Suspect]
     Indication: DIABETES MELLITUS NON-INSULIN-DEPENDENT
     Route: 048
  2. ALDALIX [Suspect]
     Indication: ESSENTIAL HYPERTENSION
     Route: 048
  3. CRESTOR [Suspect]
     Indication: HYPERCHOLESTEROLAEMIA
     Route: 048
  4. SELOKEN [Concomitant]
     Route: 048
  5. PRAZOSIN HCL [Concomitant]
     Route: 048

REACTIONS (14)
  - ARRHYTHMIA [None]
  - ATRIAL FIBRILLATION [None]
  - BLOOD DISORDER [None]
  - CARDIAC FAILURE [None]
  - DEPRESSED LEVEL OF CONSCIOUSNESS [None]
  - GALLBLADDER DISORDER [None]
  - HEPATIC FAILURE [None]
  - MULTI-ORGAN FAILURE [None]
  - PANCREATITIS HAEMORRHAGIC [None]
  - PANCREATITIS NECROTISING [None]
  - RENAL FAILURE [None]
  - RENAL INFARCT [None]
  - RESPIRATORY DISTRESS [None]
  - SEPTIC SHOCK [None]
